FAERS Safety Report 8538803-4 (Version None)
Quarter: 2012Q3

REPORT INFORMATION
  Report Type: 
  Country: None (occurrence: None)
  Receive Date: 20120726
  Receipt Date: 20120718
  Transmission Date: 20120928
  Serious: Yes (Other)
  Sender: FDA-Public Use
  Company Number: US-BAYER-2011-106133

PATIENT
  Sex: Female
  Weight: 94.331 kg

DRUGS (4)
  1. WELLBUTRIN [Concomitant]
  2. NATAZIA [Suspect]
     Indication: GENITAL HAEMORRHAGE
  3. MIRENA [Suspect]
     Dosage: UNK
     Dates: start: 20090101, end: 20101101
  4. NATAZIA [Suspect]
     Indication: CONTRACEPTION
     Dosage: UNK
     Route: 048
     Dates: start: 20110301, end: 20110601

REACTIONS (6)
  - TWIN PREGNANCY [None]
  - VAGINAL HAEMORRHAGE [None]
  - GENITAL HAEMORRHAGE [None]
  - MATERNAL EXPOSURE DURING PREGNANCY [None]
  - CAESAREAN SECTION [None]
  - PREGNANCY ON ORAL CONTRACEPTIVE [None]
